FAERS Safety Report 10553129 (Version 3)
Quarter: 2014Q4

REPORT INFORMATION
  Report Type: Spontaneous
  Country: JP (occurrence: JP)
  Receive Date: 20141030
  Receipt Date: 20141114
  Transmission Date: 20150529
  Serious: Yes (Hospitalization)
  Sender: FDA-Public Use
  Company Number: JP-009507513-1410JPN013152

PATIENT
  Age: 72 Year
  Sex: Female

DRUGS (10)
  1. COMTAN [Concomitant]
     Active Substance: ENTACAPONE
     Indication: PARKINSONISM
     Dosage: 100 MG, BID
     Route: 048
     Dates: end: 20140115
  2. DROXIDOPA [Concomitant]
     Active Substance: DROXIDOPA
     Indication: PARKINSONISM
     Dosage: 100 MG, 6 TIMES A DAY
     Route: 048
     Dates: end: 20140115
  3. NEODOPASTON [Suspect]
     Active Substance: CARBIDOPA\LEVODOPA
     Dosage: 100 MG, 9 TIMES A DAY
     Route: 048
  4. MENESIT TABLETS - 100 [Suspect]
     Active Substance: CARBIDOPA\LEVODOPA
     Indication: PARKINSONISM
     Dosage: 100 MG, TID
     Route: 048
     Dates: start: 20140125
  5. NEODOPASTON [Suspect]
     Active Substance: CARBIDOPA\LEVODOPA
     Dosage: 300 MG, QD DIVIDED DOSE FREQUENCY UNKNOWN
     Route: 048
     Dates: end: 20140115
  6. LENDORMIN [Concomitant]
     Active Substance: BROTIZOLAM
     Indication: INSOMNIA
     Dosage: 0.25 MG, QD
     Route: 048
  7. NEODOPASTON [Suspect]
     Active Substance: CARBIDOPA\LEVODOPA
     Indication: PARKINSONISM
     Dosage: DAILY DOSE UNKNOWN
     Route: 048
     Dates: start: 2005
  8. PARLODEL [Concomitant]
     Active Substance: BROMOCRIPTINE MESYLATE
     Indication: PARKINSONISM
     Dosage: 2.5 MG, 5 TIMES A DAY
     Route: 048
     Dates: end: 20140115
  9. MENESIT TABLETS - 100 [Suspect]
     Active Substance: CARBIDOPA\LEVODOPA
     Dosage: 900 MG/DAY, DIVIDED DOSE FREQUENCY UNKNOWN
     Route: 048
  10. DEPAS [Concomitant]
     Active Substance: ETIZOLAM
     Indication: ANXIETY
     Dosage: 0.5 MG, QD
     Route: 048

REACTIONS (3)
  - Dyskinesia [Not Recovered/Not Resolved]
  - Overdose [Unknown]
  - Dyskinesia [Recovered/Resolved]

NARRATIVE: CASE EVENT DATE: 2013
